FAERS Safety Report 21546730 (Version 1)
Quarter: 2022Q4

REPORT INFORMATION
  Report Type: Spontaneous
  Country: ES (occurrence: ES)
  Receive Date: 20221103
  Receipt Date: 20221103
  Transmission Date: 20230112
  Serious: Yes (Hospitalization)
  Sender: FDA-Public Use
  Company Number: None

PATIENT
  Age: 73 Year
  Sex: Male

DRUGS (2)
  1. SERTRALINE [Suspect]
     Active Substance: SERTRALINE HYDROCHLORIDE
     Indication: Depression
     Dosage: SERTRALINE (2537A), UNIT DOSE: 100 MG , FREQUENCY TIME : 1 DAY
     Dates: start: 201903, end: 20190603
  2. FLUCONAZOLE [Suspect]
     Active Substance: FLUCONAZOLE
     Indication: Linear IgA disease
     Dosage: FLUCONAZOLE (2432A), UNIT DOSE: 100 MG , FREQUENCY TIME : 1 DAY, DURATION : 5 DAYS
     Dates: start: 20190530, end: 20190603

REACTIONS (1)
  - Toxic skin eruption [Recovered/Resolved]

NARRATIVE: CASE EVENT DATE: 20190603
